FAERS Safety Report 12206587 (Version 1)
Quarter: 2016Q1

REPORT INFORMATION
  Report Type: Spontaneous
  Country: US (occurrence: US)
  Receive Date: 20160324
  Receipt Date: 20160324
  Transmission Date: 20160526
  Serious: No
  Sender: FDA-Public Use
  Company Number: US-AUROBINDO-AUR-APU-2015-08066

PATIENT

DRUGS (1)
  1. SERTRALINE HYDROCHLORIDE TABLETS 100MG [Suspect]
     Active Substance: SERTRALINE HYDROCHLORIDE
     Indication: PRODUCT USED FOR UNKNOWN INDICATION
     Route: 065

REACTIONS (7)
  - Syncope [Unknown]
  - Irritability [Unknown]
  - Hypertension [Unknown]
  - Tinnitus [Unknown]
  - Product substitution issue [Unknown]
  - Dizziness [Unknown]
  - Anxiety [Unknown]
